FAERS Safety Report 15114782 (Version 4)
Quarter: 2018Q3

REPORT INFORMATION
  Report Type: Report from Study
  Country: US (occurrence: US)
  Receive Date: 20180706
  Receipt Date: 20180810
  Transmission Date: 20181010
  Serious: Yes (Hospitalization, Other)
  Sender: FDA-Public Use
  Company Number: US-BAYER-2018-125656

PATIENT
  Age: 34 Year
  Sex: Female
  Weight: 68.03 kg

DRUGS (20)
  1. AMBRISENTAN [Suspect]
     Active Substance: AMBRISENTAN
     Indication: PULMONARY HYPERTENSION
     Dosage: UNK
     Dates: start: 20180426
  2. ADEMPAS [Suspect]
     Active Substance: RIOCIGUAT
     Indication: PULMONARY HYPERTENSION
     Dosage: 1 MG, TID
     Route: 065
     Dates: start: 20180608
  3. REMODULIN [Suspect]
     Active Substance: TREPROSTINIL
     Indication: PRODUCT USED FOR UNKNOWN INDICATION
     Dosage: 35.3 NG, Q1MIN
     Dates: start: 20160619
  4. OCEAN SALINE NASAL SPRAY [Concomitant]
     Active Substance: SODIUM CHLORIDE
  5. AUGMENTIN [Concomitant]
     Active Substance: AMOXICILLIN\CLAVULANATE POTASSIUM
  6. REMODULIN [Suspect]
     Active Substance: TREPROSTINIL
     Indication: PULMONARY HYPERTENSION
  7. TYLENOL [Concomitant]
     Active Substance: ACETAMINOPHEN
  8. ADEMPAS [Suspect]
     Active Substance: RIOCIGUAT
     Indication: PULMONARY HYPERTENSION
     Dosage: UNK
     Dates: start: 20180605
  9. PRILOSEC [Concomitant]
     Active Substance: OMEPRAZOLE MAGNESIUM
  10. ETONOGESTREL [Concomitant]
     Active Substance: ETONOGESTREL
  11. AMBRISENTAN [Suspect]
     Active Substance: AMBRISENTAN
     Indication: PULMONARY HYPERTENSION
     Dosage: 5 MG, QD
     Route: 065
     Dates: start: 20180502
  12. FERROUS SULFATE. [Concomitant]
     Active Substance: FERROUS SULFATE
  13. PLAQUENIL [Concomitant]
     Active Substance: HYDROXYCHLOROQUINE SULFATE
  14. IMODIUM [Concomitant]
     Active Substance: LOPERAMIDE HYDROCHLORIDE
  15. DELTASONE [Concomitant]
     Active Substance: PREDNISONE
  16. RITUXAN [Concomitant]
     Active Substance: RITUXIMAB
  17. PERCOCET [Concomitant]
     Active Substance: ACETAMINOPHEN\OXYCODONE HYDROCHLORIDE
  18. K?DUR [Concomitant]
     Active Substance: POTASSIUM CHLORIDE
  19. DEMADEX [Concomitant]
     Active Substance: TORSEMIDE
  20. PROTONIX [Concomitant]
     Active Substance: PANTOPRAZOLE SODIUM
     Dosage: UNK

REACTIONS (8)
  - Right ventricular failure [None]
  - Epistaxis [Unknown]
  - Haemoglobin decreased [Unknown]
  - Haematocrit decreased [Unknown]
  - Epistaxis [Recovered/Resolved]
  - Fatigue [None]
  - Weight decreased [Recovered/Resolved]
  - Dyspnoea [None]

NARRATIVE: CASE EVENT DATE: 20180627
